FAERS Safety Report 6079817-6 (Version None)
Quarter: 2009Q1

REPORT INFORMATION
  Report Type: 
  Country: None (occurrence: None)
  Receive Date: 20090217
  Receipt Date: 20090213
  Transmission Date: 20090719
  Serious: Yes (Death)
  Sender: FDA-Public Use
  Company Number: JP-ASTRAZENECA-2009AP01182

PATIENT
  Sex: Male

DRUGS (3)
  1. IRESSA [Suspect]
     Indication: LUNG NEOPLASM MALIGNANT
     Route: 048
     Dates: start: 20081001, end: 20081201
  2. CARBOPLATIN [Concomitant]
  3. GEMCITABINE [Concomitant]

REACTIONS (1)
  - LEUKOENCEPHALOPATHY [None]
